FAERS Safety Report 9832454 (Version 1)
Quarter: 2014Q1

REPORT INFORMATION
  Report Type: Report from Study
  Country: US (occurrence: US)
  Receive Date: 20140121
  Receipt Date: 20140121
  Transmission Date: 20141002
  Serious: Yes (Other)
  Sender: FDA-Public Use
  Company Number: US-JNJFOC-20140107312

PATIENT
  Age: 33 Year
  Sex: Female
  Weight: 97.52 kg

DRUGS (2)
  1. SIMPONI [Suspect]
     Indication: PRODUCT USED FOR UNKNOWN INDICATION
     Route: 058
  2. SYNTHROID [Suspect]
     Indication: THYROID DISORDER
     Route: 048

REACTIONS (2)
  - Abortion spontaneous [Unknown]
  - Exposure via father [Recovered/Resolved]
